FAERS Safety Report 8771335 (Version 2)
Quarter: 2012Q4

REPORT INFORMATION
  Report Type: 
  Country: US (occurrence: US)
  Receive Date: 20120906
  Receipt Date: 20121009
  Transmission Date: 20130627
  Serious: Yes (Hospitalization)
  Sender: FDA-Public Use
  Company Number: PHEH2012US017265

PATIENT
  Sex: Male

DRUGS (2)
  1. GLEEVEC [Suspect]
     Indication: CHRONIC MYELOID LEUKAEMIA
     Dosage: 400 mg, QD
     Route: 048
     Dates: start: 201204
  2. POTASSIUM [Concomitant]

REACTIONS (4)
  - Crohn^s disease [Recovering/Resolving]
  - Muscle rigidity [Unknown]
  - Cystitis [Unknown]
  - Sepsis [Unknown]
